FAERS Safety Report 22648032 (Version 1)
Quarter: 2023Q2

REPORT INFORMATION
  Report Type: Spontaneous
  Country: BG (occurrence: BG)
  Receive Date: 20230628
  Receipt Date: 20230628
  Transmission Date: 20230722
  Serious: Yes (Hospitalization)
  Sender: FDA-Public Use
  Company Number: BG-BRISTOL-MYERS SQUIBB COMPANY-2023-090582

PATIENT
  Age: 69 Year
  Sex: Male

DRUGS (2)
  1. OPDIVO [Suspect]
     Active Substance: NIVOLUMAB
     Indication: Metastatic malignant melanoma
     Dosage: Q2W
     Route: 042
     Dates: start: 202302
  2. DENOSUMAB [Concomitant]
     Active Substance: DENOSUMAB
     Indication: Metastatic malignant melanoma
     Route: 058
     Dates: start: 202109

REACTIONS (2)
  - Malignant neoplasm progression [Unknown]
  - Transitional cell carcinoma [Unknown]

NARRATIVE: CASE EVENT DATE: 20230501
